FAERS Safety Report 12507337 (Version 1)
Quarter: 2016Q2

REPORT INFORMATION
  Report Type: Spontaneous
  Country: US (occurrence: None)
  Receive Date: 20160628
  Receipt Date: 20160628
  Transmission Date: 20160815
  Serious: Yes (Other)
  Sender: FDA-Public Use
  Company Number: None

PATIENT
  Age: 71 Year
  Sex: Female
  Weight: 42.64 kg

DRUGS (8)
  1. VITAMINS [Concomitant]
     Active Substance: VITAMINS
  2. FLECAINIDE [Concomitant]
     Active Substance: FLECAINIDE
  3. AMOXICILLIN 875MG CITRON [Suspect]
     Active Substance: AMOXICILLIN
     Indication: LYMPHADENOPATHY
     Route: 048
     Dates: start: 20160509, end: 20160515
  4. ATENOLOL. [Concomitant]
     Active Substance: ATENOLOL
  5. TRAVATAN [Concomitant]
     Active Substance: TRAVOPROST
  6. RALOXIFENE. [Concomitant]
     Active Substance: RALOXIFENE
  7. SIMBRINZA [Concomitant]
     Active Substance: BRIMONIDINE TARTRATE\BRINZOLAMIDE
  8. PRAMIPEXOLE. [Concomitant]
     Active Substance: PRAMIPEXOLE

REACTIONS (2)
  - Chromatopsia [None]
  - Product quality issue [None]

NARRATIVE: CASE EVENT DATE: 20160511
